FAERS Safety Report 18568199 (Version 1)
Quarter: 2020Q4

REPORT INFORMATION
  Report Type: Spontaneous
  Country: FR (occurrence: FR)
  Receive Date: 20201202
  Receipt Date: 20201202
  Transmission Date: 20210114
  Serious: Yes (Hospitalization)
  Sender: FDA-Public Use
  Company Number: FR-TEVA-2020-FR-1853611

PATIENT
  Age: 49 Year
  Sex: Male
  Weight: 88 kg

DRUGS (5)
  1. CHLORHYDRATE DE TRAMADOL [Suspect]
     Active Substance: TRAMADOL HYDROCHLORIDE
     Indication: POISONING DELIBERATE
     Dosage: DOSAGE NOT KNOWN
     Route: 048
     Dates: start: 20200928, end: 20200928
  2. PARACETAMOL [Suspect]
     Active Substance: ACETAMINOPHEN
     Indication: POISONING DELIBERATE
     Dosage: 20 GRAM
     Route: 048
     Dates: start: 20200928, end: 20200928
  3. HEMIFUMARATE DE BISOPROLOL [Suspect]
     Active Substance: BISOPROLOL FUMARATE
     Indication: POISONING DELIBERATE
     Dosage: DOSAGE NOT KNOWN
     Route: 048
     Dates: start: 20200928, end: 20200928
  4. SERESTA [Suspect]
     Active Substance: OXAZEPAM
     Indication: POISONING DELIBERATE
     Dosage: DOSAGE NOT KNOWN
     Route: 048
     Dates: start: 20200928, end: 20200928
  5. CHLORHYDRATE DE LERCANIDIPINE [Suspect]
     Active Substance: LERCANIDIPINE HYDROCHLORIDE
     Indication: POISONING DELIBERATE
     Dosage: DOSAGE NOT KNOWN
     Route: 048
     Dates: start: 20200928, end: 20200928

REACTIONS (1)
  - Acute hepatic failure [Recovering/Resolving]

NARRATIVE: CASE EVENT DATE: 20200929
